FAERS Safety Report 9962145 (Version 1)
Quarter: 2014Q1

REPORT INFORMATION
  Report Type: Report from Study
  Country: US (occurrence: US)
  Receive Date: 20140305
  Receipt Date: 20140305
  Transmission Date: 20141002
  Serious: No
  Sender: FDA-Public Use
  Company Number: US-ABBVIE-13P-163-1113843-00

PATIENT
  Age: 37 Year
  Sex: Male

DRUGS (5)
  1. HUMIRA [Suspect]
     Indication: PSORIASIS
     Dates: start: 201201
  2. JANUMET [Concomitant]
     Indication: DIABETES MELLITUS
  3. ACTOS [Concomitant]
     Indication: DIABETES MELLITUS
     Dosage: 30MG DAILY
  4. NIASPAN [Concomitant]
     Indication: BLOOD TRIGLYCERIDES
     Dosage: 1000MG DAILY
  5. ASPIRIN [Concomitant]
     Indication: BLOOD TRIGLYCERIDES
     Dosage: BABY ASPIRIN DIALY

REACTIONS (2)
  - Frustration [Not Recovered/Not Resolved]
  - Psoriasis [Not Recovered/Not Resolved]
